FAERS Safety Report 25669093 (Version 1)
Quarter: 2025Q3

REPORT INFORMATION
  Report Type: Report from Study
  Country: US (occurrence: US)
  Receive Date: 20250812
  Receipt Date: 20250812
  Transmission Date: 20251021
  Serious: Yes (Hospitalization)
  Sender: ABBVIE
  Company Number: US-ABBVIE-6409335

PATIENT
  Age: 62 Year
  Sex: Female

DRUGS (1)
  1. ARMOUR THYROID [Suspect]
     Active Substance: THYROID, PORCINE
     Indication: Thyroid disorder
     Dosage: ARMOUR THYROID 120 MG
     Route: 048
     Dates: start: 202407

REACTIONS (3)
  - Seizure [Unknown]
  - Thyroid function test abnormal [Not Recovered/Not Resolved]
  - Thyroid atrophy [Unknown]

NARRATIVE: CASE EVENT DATE: 20250601
